FAERS Safety Report 7512017-9 (Version None)
Quarter: 2011Q2

REPORT INFORMATION
  Report Type: 
  Country: None (occurrence: None)
  Receive Date: 20110531
  Receipt Date: 20110517
  Transmission Date: 20111010
  Serious: Yes (Other)
  Sender: FDA-Public Use
  Company Number: PHHY2011GR41917

PATIENT
  Age: 38 Year
  Sex: Female

DRUGS (1)
  1. EXTAVIA [Suspect]

REACTIONS (8)
  - ASPARTATE AMINOTRANSFERASE INCREASED [None]
  - HAEMATOCRIT DECREASED [None]
  - WHITE BLOOD CELL COUNT DECREASED [None]
  - BLOOD ALKALINE PHOSPHATASE INCREASED [None]
  - INJECTION SITE ERYTHEMA [None]
  - ALANINE AMINOTRANSFERASE INCREASED [None]
  - GAMMA-GLUTAMYLTRANSFERASE INCREASED [None]
  - INJECTION SITE HAEMATOMA [None]
